FAERS Safety Report 24613669 (Version 3)
Quarter: 2025Q3

REPORT INFORMATION
  Report Type: Spontaneous
  Country: JP (occurrence: JP)
  Receive Date: 20241113
  Receipt Date: 20250810
  Transmission Date: 20251020
  Serious: Yes (Hospitalization, Other)
  Sender: ALEXION PHARMACEUTICALS
  Company Number: JP-ASTRAZENECA-240111578_063010_P_1

PATIENT
  Age: 8 Decade
  Sex: Male

DRUGS (14)
  1. DAPAGLIFLOZIN [Suspect]
     Active Substance: DAPAGLIFLOZIN
     Indication: Cardiac failure chronic
  2. DAPAGLIFLOZIN [Suspect]
     Active Substance: DAPAGLIFLOZIN
  3. EDOXABAN [Concomitant]
     Active Substance: EDOXABAN
     Route: 065
  4. BEPRIDIL HYDROCHLORIDE [Concomitant]
     Active Substance: BEPRIDIL HYDROCHLORIDE
     Route: 065
  5. Hyperten [Concomitant]
     Route: 065
  6. Hyperten [Concomitant]
     Route: 065
  7. Hyperten [Concomitant]
     Route: 065
  8. Hyperten [Concomitant]
     Route: 065
  9. FUROSEMIDE [Concomitant]
     Active Substance: FUROSEMIDE
     Route: 065
  10. FUROSEMIDE [Concomitant]
     Active Substance: FUROSEMIDE
     Route: 065
  11. FUROSEMIDE [Concomitant]
     Active Substance: FUROSEMIDE
     Route: 065
  12. FUROSEMIDE [Concomitant]
     Active Substance: FUROSEMIDE
     Route: 065
  13. EDOXABAN [Concomitant]
     Active Substance: EDOXABAN
     Route: 065
  14. BEPRIDIL [Concomitant]
     Active Substance: BEPRIDIL
     Route: 065

REACTIONS (3)
  - Blood potassium increased [Recovering/Resolving]
  - Blood creatinine increased [Recovering/Resolving]
  - Dehydration [Unknown]
